FAERS Safety Report 5534718-4 (Version None)
Quarter: 2007Q4

REPORT INFORMATION
  Report Type: 
  Country: None (occurrence: None)
  Receive Date: 20071120
  Receipt Date: 20070911
  Transmission Date: 20080405
  Serious: No
  Sender: FDA-Public Use
  Company Number: WAES 0709USA01559

PATIENT
  Age: 77 Year
  Sex: Female

DRUGS (9)
  1. JANUVIA [Suspect]
     Indication: DIABETES MELLITUS
     Dosage: 100 MG/DAILY/PO
     Route: 048
     Dates: start: 20070906, end: 20070911
  2. ATACAND [Concomitant]
  3. CELEBREX [Concomitant]
  4. FOSAMAX [Concomitant]
  5. NORVASC [Concomitant]
  6. PLAVIX [Concomitant]
  7. SYNTHROID [Concomitant]
  8. TOPROL-XL [Concomitant]
  9. ZOCOR [Concomitant]

REACTIONS (2)
  - HEADACHE [None]
  - NAUSEA [None]
